FAERS Safety Report 20122702 (Version 2)
Quarter: 2022Q1

REPORT INFORMATION
  Report Type: Other
  Country: CN (occurrence: None)
  Receive Date: 20211128
  Receipt Date: 20220110
  Transmission Date: 20220424
  Serious: Yes (Other)
  Sender: FDA-Public Use
  Company Number: CN-ROCHE-2961343

PATIENT
  Age: 37 Year
  Sex: Male
  Weight: 60 kg

DRUGS (2)
  1. CAPECITABINE [Suspect]
     Active Substance: CAPECITABINE
     Indication: Adenocarcinoma of colon
     Dosage: 21 D AS A CYCLE OF TREATMENT
     Route: 048
     Dates: start: 20190119, end: 20190306
  2. OXALIPLATIN [Suspect]
     Active Substance: OXALIPLATIN
     Indication: Adenocarcinoma of colon
     Route: 042
     Dates: start: 20190119, end: 20190306

REACTIONS (1)
  - Hyperglycaemia [Recovered/Resolved]
